FAERS Safety Report 4560650-9 (Version None)
Quarter: 2005Q1

REPORT INFORMATION
  Report Type: 
  Country: None (occurrence: None)
  Receive Date: 20050124
  Receipt Date: 20050124
  Transmission Date: 20050727
  Serious: Yes (Life-Threatening, Hospitalization, Other)
  Sender: FDA-Public Use
  Company Number: None

PATIENT
  Age: 57 Year
  Sex: Female
  Weight: 52 kg

DRUGS (13)
  1. QUETIAPINE [Suspect]
     Indication: SCHIZOAFFECTIVE DISORDER
     Dosage: 200 MG PO HS [PRIOR TO ADMISSION TO 1/22/05]
     Route: 048
     Dates: end: 20050122
  2. FLUTICASONE PROPIONATE [Concomitant]
  3. LANSOPRAZOLE [Concomitant]
  4. AMITRIPTYLINE [Concomitant]
  5. ESCITALOPRAM [Concomitant]
  6. IPRATROPIUM BROMIDE [Concomitant]
  7. MUCINEX [Concomitant]
  8. MONTELUKAST [Concomitant]
  9. ALBUTEROL [Concomitant]
  10. MIDAZOLAM HCL [Concomitant]
  11. PHENYLEPHRINE [Concomitant]
  12. PROPOFOL [Concomitant]
  13. BUSPIRONE [Concomitant]

REACTIONS (1)
  - NEUROLEPTIC MALIGNANT SYNDROME [None]
